FAERS Safety Report 4401061-6 (Version None)
Quarter: 2004Q3

REPORT INFORMATION
  Report Type: 
  Country: None (occurrence: None)
  Receive Date: 20040907
  Receipt Date: 20031013
  Transmission Date: 20050211
  Serious: No
  Sender: FDA-Public Use
  Company Number: US-BRISTOL-MYERS SQUIBB COMPANY-12409975

PATIENT
  Age: 65 Year
  Sex: Male
  Weight: 109 kg

DRUGS (5)
  1. COUMADIN [Suspect]
     Indication: ATRIAL FIBRILLATION
     Route: 048
  2. MAVIK [Concomitant]
  3. TOPROL-XL [Concomitant]
  4. GLUCOTROL XL [Concomitant]
  5. LIPITOR [Concomitant]

REACTIONS (3)
  - BLOOD GLUCOSE INCREASED [None]
  - FATIGUE [None]
  - SOMNOLENCE [None]
